FAERS Safety Report 5482161-9 (Version None)
Quarter: 2007Q4

REPORT INFORMATION
  Report Type: 
  Country: None (occurrence: None)
  Receive Date: 20071011
  Receipt Date: 20071005
  Transmission Date: 20080405
  Serious: Yes (Death, Life-Threatening, Other)
  Sender: FDA-Public Use
  Company Number: JP-AVENTIS-200712109JP

PATIENT
  Age: 83 Year
  Sex: Male
  Weight: 48 kg

DRUGS (9)
  1. TAXOTERE [Suspect]
     Indication: NON-SMALL CELL LUNG CANCER
     Route: 041
     Dates: start: 20070727, end: 20070727
  2. ASPIRIN [Suspect]
     Indication: CEREBRAL INFARCTION
     Route: 048
     Dates: end: 20070730
  3. DECADRON [Concomitant]
     Indication: PREMEDICATION
     Route: 041
     Dates: start: 20070727, end: 20070727
  4. KYTRIL                             /01178101/ [Concomitant]
     Indication: PREMEDICATION
     Route: 041
     Dates: start: 20070727, end: 20070727
  5. PRORENAL [Concomitant]
     Indication: LUMBAR SPINAL STENOSIS
     Route: 048
     Dates: end: 20070802
  6. HARNAL [Concomitant]
     Indication: BENIGN PROSTATIC HYPERPLASIA
     Route: 048
     Dates: end: 20070730
  7. MUCOSAL [Concomitant]
     Indication: BRONCHITIS
     Route: 048
     Dates: end: 20070730
  8. AMARYL [Concomitant]
     Indication: DIABETES MELLITUS
     Route: 048
     Dates: end: 20070730
  9. BASEN [Concomitant]
     Indication: DIABETES MELLITUS
     Route: 048
     Dates: end: 20070730

REACTIONS (8)
  - ANAPHYLACTOID SHOCK [None]
  - BLOOD PRESSURE DECREASED [None]
  - COLITIS [None]
  - DYSPNOEA [None]
  - GASTROINTESTINAL HAEMORRHAGE [None]
  - NEUTROPENIA [None]
  - PULMONARY ALVEOLAR HAEMORRHAGE [None]
  - URTICARIA [None]
